FAERS Safety Report 5115160-7 (Version None)
Quarter: 2006Q3

REPORT INFORMATION
  Report Type: 
  Country: None (occurrence: None)
  Receive Date: 20060926
  Receipt Date: 20060215
  Transmission Date: 20061208
  Serious: Yes (Hospitalization, Disabling)
  Sender: FDA-Public Use
  Company Number: FR-SANOFI-SYNTHELABO-A02200600487

PATIENT
  Age: 67 Year
  Sex: Male

DRUGS (12)
  1. CHONDROSULF [Concomitant]
     Indication: OSTEOARTHRITIS
     Dosage: 900 MG
     Route: 048
     Dates: start: 20051201, end: 20060101
  2. LODALES [Concomitant]
     Indication: DRUG USE FOR UNKNOWN INDICATION
     Route: 048
     Dates: start: 19940101
  3. PLAVIX [Suspect]
     Indication: CORONARY ARTERY DISEASE
     Route: 048
     Dates: start: 20050601, end: 20060401
  4. GRANIONS [Concomitant]
     Indication: OSTEOARTHRITIS
     Route: 048
     Dates: start: 20051201, end: 20060101
  5. GRANIONS [Concomitant]
     Dosage: 0.4 MG
     Route: 048
     Dates: start: 20051201, end: 20060101
  6. GRANIONS [Concomitant]
     Dosage: 0.9 MG
     Route: 048
     Dates: start: 20051201, end: 20060101
  7. TILCOTIL [Concomitant]
     Indication: DRUG USE FOR UNKNOWN INDICATION
     Dosage: 40 MG
     Route: 048
     Dates: start: 20060221, end: 20060327
  8. NEXIUM [Concomitant]
     Indication: DRUG USE FOR UNKNOWN INDICATION
     Dosage: 40 MG
     Route: 048
     Dates: start: 20060221
  9. COLCHICINE [Concomitant]
     Indication: DRUG USE FOR UNKNOWN INDICATION
     Route: 048
     Dates: start: 20060221
  10. EUPANTOL [Concomitant]
     Indication: DRUG USE FOR UNKNOWN INDICATION
     Route: 048
     Dates: start: 20060310
  11. CREON [Concomitant]
     Indication: DRUG USE FOR UNKNOWN INDICATION
     Dosage: 3 UNIT
     Route: 048
     Dates: start: 20060111, end: 20060209
  12. SYNEDIL [Concomitant]
     Indication: DRUG USE FOR UNKNOWN INDICATION
     Dosage: 3 UNIT
     Route: 065
     Dates: start: 20060111

REACTIONS (8)
  - AMYOTROPHIC LATERAL SCLEROSIS [None]
  - BALANCE DISORDER [None]
  - DEFAECATION URGENCY [None]
  - MICTURITION URGENCY [None]
  - NEUROLOGICAL EYELID DISORDER [None]
  - PSEUDOBULBAR PALSY [None]
  - PYRAMIDAL TRACT SYNDROME [None]
  - SPEECH DISORDER [None]
